FAERS Safety Report 11431592 (Version 1)
Quarter: 2015Q3

REPORT INFORMATION
  Report Type: Spontaneous
  Country: US (occurrence: US)
  Receive Date: 20150828
  Receipt Date: 20150828
  Transmission Date: 20151125
  Serious: Yes (Other)
  Sender: FDA-Public Use
  Company Number: US-GLAXOSMITHKLINE-US2015GSK123024

PATIENT
  Age: 50 Year
  Sex: Female

DRUGS (2)
  1. DABRAFENIB [Suspect]
     Active Substance: DABRAFENIB
  2. INTERLEUKIN-2 [Concomitant]
     Active Substance: ALDESLEUKIN

REACTIONS (3)
  - Nodule [Unknown]
  - Granuloma [Unknown]
  - Panniculitis [Unknown]
